FAERS Safety Report 6414064-7 (Version None)
Quarter: 2009Q4

REPORT INFORMATION
  Report Type: 
  Country: None (occurrence: None)
  Receive Date: 20091026
  Receipt Date: 20091021
  Transmission Date: 20100525
  Serious: Yes (Other)
  Sender: FDA-Public Use
  Company Number: JP-ELI_LILLY_AND_COMPANY-JP200910005651

PATIENT
  Age: 83 Year
  Sex: Male

DRUGS (2)
  1. GEMZAR [Suspect]
     Indication: BILE DUCT CANCER STAGE III
     Dosage: UNK, UNK
     Route: 042
     Dates: start: 20061031, end: 20071201
  2. GEMZAR [Suspect]
     Dosage: 800 MG/M2, OTHER
     Route: 042
     Dates: start: 20071201, end: 20080801

REACTIONS (9)
  - BLADDER CANCER [None]
  - BLADDER CANCER RECURRENT [None]
  - CHOLANGITIS [None]
  - COGNITIVE DISORDER [None]
  - CONSTIPATION [None]
  - NAUSEA [None]
  - NEUTROPHIL COUNT DECREASED [None]
  - PERFORMANCE STATUS DECREASED [None]
  - WHITE BLOOD CELL COUNT DECREASED [None]
